FAERS Safety Report 19913864 (Version 1)
Quarter: 2021Q4

REPORT INFORMATION
  Report Type: Spontaneous
  Country: GB (occurrence: GB)
  Receive Date: 20211004
  Receipt Date: 20211004
  Transmission Date: 20220303
  Serious: Yes (Other)
  Sender: FDA-Public Use
  Company Number: GB-ABBVIE-21K-167-4096683-00

PATIENT
  Age: 61 Year
  Sex: Female

DRUGS (3)
  1. VALPROIC ACID [Suspect]
     Active Substance: VALPROIC ACID
     Indication: Bipolar disorder
     Route: 065
  2. LITHIUM [Suspect]
     Active Substance: LITHIUM
     Indication: Bipolar disorder
     Dosage: UNK FOR PAST 2 DECADES
     Route: 065
  3. QUETIAPINE FUMARATE [Suspect]
     Active Substance: QUETIAPINE FUMARATE
     Indication: Bipolar disorder
     Route: 065

REACTIONS (7)
  - Glycosylated haemoglobin increased [Unknown]
  - Headache [Unknown]
  - Malaise [Unknown]
  - Hyperparathyroidism [Unknown]
  - Blood calcium decreased [Recovered/Resolved]
  - Blood parathyroid hormone decreased [Unknown]
  - Alanine aminotransferase increased [Unknown]
